FAERS Safety Report 7734592-1 (Version None)
Quarter: 2011Q3

REPORT INFORMATION
  Report Type: 
  Country: None (occurrence: None)
  Receive Date: 20110907
  Receipt Date: 20110829
  Transmission Date: 20111222
  Serious: Yes (Hospitalization)
  Sender: FDA-Public Use
  Company Number: US-ASTRAZENECA-2011SE41274

PATIENT
  Age: 60 Year
  Sex: Female
  Weight: 70 kg

DRUGS (7)
  1. PULMICORT FLEXHALER [Suspect]
     Dosage: 180 MCG, TWO PUFFS TWO TIMES A DAY
     Route: 055
  2. ALBUTEROL PLUS IPRATROPIUM [Concomitant]
     Dosage: 3 TO 5 X AS REQUIRED
  3. PULMICORT FLEXHALER [Suspect]
     Route: 055
  4. NEXIUM [Suspect]
     Route: 048
  5. CRESTOR [Suspect]
     Route: 048
  6. ASPIRIN [Concomitant]
     Dosage: ONCE A DAY
  7. NEXIUM [Suspect]
     Route: 048

REACTIONS (7)
  - OFF LABEL USE [None]
  - DYSPNOEA EXERTIONAL [None]
  - PEPTIC ULCER [None]
  - BLOOD CHOLESTEROL INCREASED [None]
  - CHRONIC OBSTRUCTIVE PULMONARY DISEASE [None]
  - MALAISE [None]
  - THERAPEUTIC RESPONSE UNEXPECTED [None]
